FAERS Safety Report 5892699-8 (Version None)
Quarter: 2008Q3

REPORT INFORMATION
  Report Type: 
  Country: None (occurrence: None)
  Receive Date: 20080923
  Receipt Date: 20080917
  Transmission Date: 20090109
  Serious: Yes (Other)
  Sender: FDA-Public Use
  Company Number: PHHY2008JP21907

PATIENT
  Sex: Female

DRUGS (3)
  1. VOLTAREN [Suspect]
     Indication: GYNAECOLOGICAL EXAMINATION
     Dosage: 50 MG
     Route: 048
  2. VOLTAREN [Interacting]
     Dosage: 50 MG
     Route: 054
  3. ALCOHOL [Interacting]
     Dosage: UNK

REACTIONS (1)
  - DEPRESSED LEVEL OF CONSCIOUSNESS [None]
